FAERS Safety Report 6813793-0 (Version None)
Quarter: 2010Q3

REPORT INFORMATION
  Report Type: 
  Country: None (occurrence: None)
  Receive Date: 20100701
  Receipt Date: 20100621
  Transmission Date: 20110219
  Serious: Yes (Other)
  Sender: FDA-Public Use
  Company Number: US-ABBOTT-10P-163-0645183-00

PATIENT
  Sex: Male
  Weight: 139.83 kg

DRUGS (11)
  1. HUMIRA [Suspect]
     Indication: RHEUMATOID ARTHRITIS
     Route: 058
     Dates: start: 20040216, end: 20100430
  2. HUMIRA [Suspect]
     Route: 058
     Dates: start: 20030627
  3. ALLOPURINOL [Concomitant]
     Indication: GOUT
     Dosage: 300MG DAILY
     Dates: start: 20050709
  4. SOMA [Concomitant]
     Indication: OSTEOARTHRITIS
     Dates: start: 20061130
  5. COLCHICINE [Concomitant]
     Indication: GOUT
     Route: 048
     Dates: start: 20051028
  6. CYCLOBENZAPRINE [Concomitant]
     Indication: SPINAL OSTEOARTHRITIS
     Dosage: Q8H PRN
     Route: 048
     Dates: start: 20100330
  7. CYCLOBENZAPRINE [Concomitant]
     Indication: BACK PAIN
  8. FUROSEMIDE [Concomitant]
     Indication: OEDEMA
     Route: 048
     Dates: start: 20090218
  9. HYDROCODONE BITARTRATE [Concomitant]
     Indication: BACK PAIN
     Dosage: 5/500  Q6H PRN
     Route: 048
     Dates: start: 20100330
  10. SIMVASTATIN [Concomitant]
     Indication: HYPERLIPIDAEMIA
     Dosage: 40MG DAILY
     Dates: start: 20090406
  11. SPIRIVA [Concomitant]
     Indication: EMPHYSEMA
     Dates: start: 20100204

REACTIONS (4)
  - BACK PAIN [None]
  - LYMPHADENOPATHY [None]
  - LYMPHOMA [None]
  - NON-HODGKIN'S LYMPHOMA [None]
